FAERS Safety Report 6202324-4 (Version None)
Quarter: 2009Q2

REPORT INFORMATION
  Report Type: 
  Country: None (occurrence: None)
  Receive Date: 20090526
  Receipt Date: 20090519
  Transmission Date: 20091009
  Serious: Yes (Hospitalization)
  Sender: FDA-Public Use
  Company Number: US-PFIZER INC-2005113599

PATIENT
  Sex: Male
  Weight: 63.96 kg

DRUGS (13)
  1. MARAVIROC [Suspect]
     Indication: HIV TEST POSITIVE
     Dosage: UNK
     Route: 048
     Dates: start: 20050504, end: 20060127
  2. VICODIN [Concomitant]
     Route: 048
     Dates: start: 20040404
  3. REYATAZ [Concomitant]
     Route: 048
     Dates: start: 20050704
  4. ACYCLOVIR [Concomitant]
     Route: 048
     Dates: start: 20040404
  5. MIRTAZAPINE [Concomitant]
     Route: 048
     Dates: start: 20040928
  6. EPIVIR [Concomitant]
     Route: 048
     Dates: start: 20050504
  7. ZIAGEN [Concomitant]
     Route: 048
     Dates: start: 20050504
  8. NORVIR [Concomitant]
     Route: 048
     Dates: start: 20050704
  9. FUZEON [Concomitant]
     Route: 058
     Dates: start: 20050504
  10. HYTRIN [Concomitant]
     Route: 048
     Dates: start: 20040622
  11. ZITHROMAX [Concomitant]
     Route: 048
     Dates: start: 19991019
  12. DAPSONE [Concomitant]
     Route: 048
     Dates: start: 20040617
  13. DIGOXIN [Concomitant]
     Route: 048
     Dates: start: 20020101

REACTIONS (1)
  - NEPHROLITHIASIS [None]
